FAERS Safety Report 7288101-4 (Version None)
Quarter: 2011Q1

REPORT INFORMATION
  Report Type: 
  Country: None (occurrence: None)
  Receive Date: 20110211
  Receipt Date: 20110204
  Transmission Date: 20110831
  Serious: Yes (Other)
  Sender: FDA-Public Use
  Company Number: JP-PFIZER INC-2011015806

PATIENT
  Age: 6 Year
  Sex: Male

DRUGS (2)
  1. GENOTROPIN TC [Suspect]
     Indication: BODY HEIGHT BELOW NORMAL
     Dosage: 0.4 MG, DAILY, 4 TIMES WEEKLY AND 0.6 MG DAILY TWO TIMES WEEKLY
     Route: 058
     Dates: start: 20080215, end: 20110121
  2. GENOTROPIN TC [Suspect]
     Indication: HYPOPITUITARISM

REACTIONS (2)
  - PAIN IN EXTREMITY [None]
  - ARTHRALGIA [None]
